FAERS Safety Report 8833261 (Version 1)
Quarter: 2012Q4

REPORT INFORMATION
  Report Type: 
  Country: IT (occurrence: IT)
  Receive Date: 20121010
  Receipt Date: 20121010
  Transmission Date: 20130627
  Serious: Yes (Other)
  Sender: FDA-Public Use
  Company Number: IT-MYLANLABS-2012S1020107

PATIENT
  Age: 85 Year
  Sex: Male

DRUGS (7)
  1. LEVOFLOXACIN [Suspect]
     Indication: URINARY TRACT INFECTION
     Route: 048
     Dates: start: 20120917, end: 20120920
  2. TRIATEC /00885601/ [Concomitant]
     Indication: HYPERTENSION
  3. CARDIOASPIRIN [Concomitant]
     Indication: MYOCARDIAL ISCHAEMIA
  4. LASIX [Concomitant]
     Indication: CARDIAC FAILURE
  5. SINVACOR [Concomitant]
     Indication: MYOCARDIAL ISCHAEMIA
  6. ZYLORIC [Concomitant]
     Indication: GOUT
  7. ZOLOFT [Concomitant]
     Indication: DEPRESSION

REACTIONS (6)
  - Diarrhoea [Recovering/Resolving]
  - Insomnia [Recovering/Resolving]
  - Nervousness [Recovering/Resolving]
  - Blood sodium decreased [Unknown]
  - Haemoglobin decreased [Unknown]
  - White blood cell count increased [Unknown]
